FAERS Safety Report 21652502 (Version 1)
Quarter: 2022Q4

REPORT INFORMATION
  Report Type: Spontaneous
  Country: US (occurrence: US)
  Receive Date: 20221128
  Receipt Date: 20221128
  Transmission Date: 20230113
  Serious: Yes (Other)
  Sender: FDA-Public Use
  Company Number: US-MYLANLABS-2022M1132386

PATIENT
  Age: 67 Year
  Sex: Male

DRUGS (5)
  1. LENALIDOMIDE [Suspect]
     Active Substance: LENALIDOMIDE
     Indication: Plasma cell myeloma
     Dosage: 25 MILLIGRAM, QD; FROM DAY-1 TO DAY-21 WITH 7-DAY REST TIME (CYCLES 1-24)
     Route: 065
  2. LENALIDOMIDE [Suspect]
     Active Substance: LENALIDOMIDE
     Dosage: DOSE OF LENALIDOMIDE WAS LOWERED TO 15MG AT CYCLE 5 AND FINALLY DISCONTINUED.
     Route: 065
  3. DEXAMETHASONE [Suspect]
     Active Substance: DEXAMETHASONE
     Indication: Plasma cell myeloma
     Dosage: 40 MILLIGRAM, CYCLE; ON DAYS 1, 8, 15 AND 22 (CYCLES 1-6)
     Route: 065
  4. DEXAMETHASONE [Suspect]
     Active Substance: DEXAMETHASONE
     Dosage: 20 MILLIGRAM, CYCLE; ON DAYS 1, 8, 15 AND 22 BETWEEN CYCLES 7 AND 12.
     Route: 065
  5. ASPIRIN [Concomitant]
     Active Substance: ASPIRIN
     Indication: Thrombosis prophylaxis
     Dosage: 325 MILLIGRAM
     Route: 065

REACTIONS (2)
  - Pulmonary venous thrombosis [Recovered/Resolved]
  - Syncope [Unknown]
